FAERS Safety Report 7805455-8 (Version None)
Quarter: 2011Q4

REPORT INFORMATION
  Report Type: 
  Country: None (occurrence: None)
  Receive Date: 20111010
  Receipt Date: 20110926
  Transmission Date: 20120403
  Serious: Yes (Hospitalization)
  Sender: FDA-Public Use
  Company Number: PHEH2011US05535

PATIENT
  Sex: Female

DRUGS (1)
  1. GLEEVEC [Suspect]
     Indication: CHRONIC MYELOID LEUKAEMIA
     Dosage: 600 MG, DAILY
     Route: 048
     Dates: start: 20110907, end: 20110920

REACTIONS (7)
  - FULL BLOOD COUNT INCREASED [None]
  - PALPITATIONS [None]
  - DYSPNOEA [None]
  - DECREASED APPETITE [None]
  - OEDEMA [None]
  - OEDEMA PERIPHERAL [None]
  - FATIGUE [None]
